FAERS Safety Report 10412128 (Version 1)
Quarter: 2014Q2

REPORT INFORMATION
  Report Type: Spontaneous
  Country: US (occurrence: None)
  Receive Date: 20140604
  Receipt Date: 20140604
  Transmission Date: 20141212
  Serious: Yes (Other)
  Sender: FDA-Public Use
  Company Number: 163-POMAL-14032067

PATIENT
  Age: 75 Year
  Sex: Female
  Weight: 57.15 kg

DRUGS (9)
  1. POMALYST [Suspect]
     Indication: PLASMA CELL MYELOMA
     Route: 048
     Dates: start: 201401
  2. ATORVASTATIN(ATORVASTATIN)(UNKNOWN) [Concomitant]
  3. COUMADIN(WARFARIN SODIUM)(UNKNOWN) [Concomitant]
  4. DEXAMETHASONE(DEXAMETHASONE)(UNKNOWN) [Concomitant]
  5. DIOVAN(UNKNOWN) [Concomitant]
  6. GABAPENTIN(GABAPENTIN)(UNKNOWN) [Concomitant]
  7. METOPROLOL(METOPROLOL)(UNKNOWN) [Concomitant]
  8. VALTREX(VALACICLOVIR HYDROCHLORIDE)(UNKNOWN) [Concomitant]
  9. JANTOVEN(WARFARIN SODIUM)(UNKNOWN) [Concomitant]

REACTIONS (5)
  - Neutrophil count decreased [None]
  - Neutropenia [None]
  - White blood cell count decreased [None]
  - Dizziness [None]
  - Neuropathy peripheral [None]
